FAERS Safety Report 6211745-5 (Version None)
Quarter: 2009Q2

REPORT INFORMATION
  Report Type: 
  Country: None (occurrence: None)
  Receive Date: 20090528
  Receipt Date: 20090519
  Transmission Date: 20091009
  Serious: Yes (Hospitalization, Other)
  Sender: FDA-Public Use
  Company Number: 2009JP000969

PATIENT
  Age: 47 Year
  Sex: Female
  Weight: 59 kg

DRUGS (14)
  1. PROGRAF [Suspect]
     Indication: SYSTEMIC LUPUS ERYTHEMATOSUS
     Dosage: 1 MG, ORAL; 2 MG, ORAL; 3 MG, UID/QD, ORAL; 1.5 MG, UID/QD, ORAL; 2 MG, UID/QD, ORAL
     Route: 048
     Dates: end: 20080715
  2. PROGRAF [Suspect]
     Indication: SYSTEMIC LUPUS ERYTHEMATOSUS
     Dosage: 1 MG, ORAL; 2 MG, ORAL; 3 MG, UID/QD, ORAL; 1.5 MG, UID/QD, ORAL; 2 MG, UID/QD, ORAL
     Route: 048
     Dates: start: 20080716, end: 20080803
  3. PROGRAF [Suspect]
     Indication: SYSTEMIC LUPUS ERYTHEMATOSUS
     Dosage: 1 MG, ORAL; 2 MG, ORAL; 3 MG, UID/QD, ORAL; 1.5 MG, UID/QD, ORAL; 2 MG, UID/QD, ORAL
     Route: 048
     Dates: start: 20080901, end: 20080905
  4. PROGRAF [Suspect]
     Indication: SYSTEMIC LUPUS ERYTHEMATOSUS
     Dosage: 1 MG, ORAL; 2 MG, ORAL; 3 MG, UID/QD, ORAL; 1.5 MG, UID/QD, ORAL; 2 MG, UID/QD, ORAL
     Route: 048
     Dates: start: 20080918, end: 20081015
  5. PROGRAF [Suspect]
     Indication: SYSTEMIC LUPUS ERYTHEMATOSUS
     Dosage: 1 MG, ORAL; 2 MG, ORAL; 3 MG, UID/QD, ORAL; 1.5 MG, UID/QD, ORAL; 2 MG, UID/QD, ORAL
     Route: 048
     Dates: start: 20081016, end: 20081103
  6. PROGRAF [Suspect]
     Indication: SYSTEMIC LUPUS ERYTHEMATOSUS
     Dosage: 1 MG, ORAL; 2 MG, ORAL; 3 MG, UID/QD, ORAL; 1.5 MG, UID/QD, ORAL; 2 MG, UID/QD, ORAL
     Route: 048
     Dates: start: 20080507
  7. LIPITOR [Concomitant]
  8. LANSOPRAZOLE [Concomitant]
  9. PERSANTIN (DIPYRIDAMOLE) TABLET [Concomitant]
  10. PREDNISOLONE TAB [Concomitant]
  11. ALFAROL (ALFACALCIDOL) CAPSULE [Concomitant]
  12. SULFAMETHOXAZOLE AND TRIMETHOPRIM [Concomitant]
  13. FERROMIA (FERROUS CITRATE) TABLET [Concomitant]
  14. LAC B (LACTOBACILLUS BIFIDUS, LYOPHILIZED) GRANULE [Concomitant]

REACTIONS (8)
  - ABDOMINAL PAIN [None]
  - ANGIOEDEMA [None]
  - CONDITION AGGRAVATED [None]
  - GASTROINTESTINAL OEDEMA [None]
  - HEADACHE [None]
  - LYMPHADENITIS [None]
  - NEPHROTIC SYNDROME [None]
  - PAIN [None]
